FAERS Safety Report 17966461 (Version 1)
Quarter: 2020Q3

REPORT INFORMATION
  Report Type: Spontaneous
  Country: US (occurrence: US)
  Receive Date: 20200701
  Receipt Date: 20200701
  Transmission Date: 20201103
  Serious: Yes (Other)
  Sender: FDA-Public Use
  Company Number: US-ASTRAZENECA-2020SE81501

PATIENT
  Age: 67 Year
  Sex: Female
  Weight: 59.4 kg

DRUGS (6)
  1. ALPRAZOLAM. [Concomitant]
     Active Substance: ALPRAZOLAM
     Indication: ANXIETY
  2. LYRICA [Suspect]
     Active Substance: PREGABALIN
     Dosage: 150.0MG UNKNOWN
     Route: 048
  3. LYRICA [Suspect]
     Active Substance: PREGABALIN
     Dosage: 600.0MG UNKNOWN
     Route: 048
  4. ROSUVASTATIN. [Suspect]
     Active Substance: ROSUVASTATIN
     Indication: BLOOD CHOLESTEROL
     Route: 048
  5. LISINOPRIL. [Concomitant]
     Active Substance: LISINOPRIL
     Indication: HYPERTENSION
  6. LYRICA [Suspect]
     Active Substance: PREGABALIN
     Dosage: 900.0MG UNKNOWN
     Route: 048

REACTIONS (6)
  - Coeliac disease [Unknown]
  - Pain in extremity [Unknown]
  - Gastrointestinal pain [Unknown]
  - Coronary artery occlusion [Unknown]
  - Abdominal discomfort [Unknown]
  - Malaise [Unknown]
